FAERS Safety Report 12353059 (Version 1)
Quarter: 2016Q2

REPORT INFORMATION
  Report Type: Spontaneous
  Country: US (occurrence: US)
  Receive Date: 20160510
  Receipt Date: 20160510
  Transmission Date: 20160815
  Serious: Yes (Hospitalization)
  Sender: FDA-Public Use
  Company Number: US-FRI-1000084449

PATIENT
  Age: 88 Year
  Sex: Male

DRUGS (7)
  1. LINZESS [Suspect]
     Active Substance: LINACLOTIDE
     Route: 048
  2. ASPIRIN. [Concomitant]
     Active Substance: ASPIRIN
  3. COLACE [Concomitant]
     Active Substance: DOCUSATE SODIUM
  4. MULTIVITAMINS [Concomitant]
     Active Substance: VITAMINS
  5. EXLAX [Concomitant]
  6. MOBIC [Concomitant]
     Active Substance: MELOXICAM
  7. UROXATRAL [Concomitant]
     Active Substance: ALFUZOSIN HYDROCHLORIDE

REACTIONS (3)
  - Diarrhoea [Unknown]
  - Hyponatraemia [Unknown]
  - Renal disorder [Unknown]
